FAERS Safety Report 8309214-1 (Version None)
Quarter: 2012Q2

REPORT INFORMATION
  Report Type: 
  Country: None (occurrence: None)
  Receive Date: 20120424
  Receipt Date: 20120409
  Transmission Date: 20120825
  Serious: Yes (Other)
  Sender: FDA-Public Use
  Company Number: CHPA2012US009048

PATIENT
  Age: 67 Year
  Sex: Female

DRUGS (3)
  1. HYDROCODONE BITARTRATE [Concomitant]
     Dosage: UNK, UNK
  2. EXCEDRIN EXTRA STRENGTH TABLETS [Suspect]
     Indication: BACK PAIN
     Dosage: 1 DF, QD
     Route: 048
  3. EXCEDRIN EXTRA STRENGTH TABLETS [Suspect]
     Dosage: 2 DF, QD
     Route: 048

REACTIONS (5)
  - UNDERDOSE [None]
  - ENERGY INCREASED [None]
  - BLOOD PRESSURE DECREASED [None]
  - INCORRECT DRUG ADMINISTRATION DURATION [None]
  - DRUG DEPENDENCE [None]
